FAERS Safety Report 9017658 (Version 2)
Quarter: 2013Q1

REPORT INFORMATION
  Report Type: Spontaneous
  Country: US (occurrence: US)
  Receive Date: 20130117
  Receipt Date: 20130220
  Transmission Date: 20140127
  Serious: Yes (Other)
  Sender: FDA-Public Use
  Company Number: US-009507513-1301USA006683

PATIENT
  Sex: Female

DRUGS (21)
  1. JANUVIA [Suspect]
     Indication: TYPE 2 DIABETES MELLITUS
     Dosage: 1 TABLET, QD
     Route: 048
     Dates: start: 2005
  2. JANUVIA [Suspect]
     Dosage: 50 MG, QD
     Route: 048
  3. CYANOCOBALAMIN [Concomitant]
     Dosage: 1 DF, QD
     Route: 048
  4. GLIMEPIRIDE [Concomitant]
     Dosage: UNK UNK, QD
     Route: 048
  5. GLUCOSAMINE [Concomitant]
     Dosage: 1 DF, QD
     Route: 048
  6. COLCRYS [Concomitant]
     Dosage: 1 DF, QD
     Route: 048
  7. MECLIZINE [Concomitant]
     Dosage: 1 DF, TID
     Route: 048
  8. VALIUM [Concomitant]
     Indication: SEDATION
     Dosage: 1 DF, TID
     Route: 048
  9. PROPRANOLOL HYDROCHLORIDE [Concomitant]
     Dosage: 1 DF, BID
     Route: 048
  10. SODIUM BICARBONATE [Concomitant]
  11. ASPIRIN [Concomitant]
     Dosage: 81 MG, QD
     Route: 048
  12. HYDRALAZINE [Concomitant]
     Dosage: 4 UNK, QD
     Route: 048
  13. HYDRALAZINE [Concomitant]
     Dosage: 1 DF, TID
     Route: 048
  14. LOFIBRA [Concomitant]
     Dosage: 1 DF, QD, EVERY MORNING WITH BREAKFAST
     Route: 048
  15. SYNTHROID [Concomitant]
     Dosage: 1 DF, QD
     Route: 048
  16. FERROUS SULFATE [Concomitant]
     Dosage: 1 DF, BID
     Route: 048
  17. CINNAMON [Concomitant]
     Route: 048
  18. TYLENOL [Concomitant]
     Indication: PAIN
     Dosage: 2 DF, Q6H
     Route: 048
  19. OMEGA-3 MARINE TRIGLYCERIDES [Concomitant]
     Dosage: 1 DF, QD
     Route: 048
  20. CHOLECALCIFEROL [Concomitant]
     Dosage: 1 UNITS, QD
     Route: 048
  21. INDERAL [Concomitant]

REACTIONS (8)
  - Loss of consciousness [Unknown]
  - Renal failure chronic [Recovering/Resolving]
  - Concussion [Unknown]
  - Fall [Unknown]
  - Amnesia [Unknown]
  - Hypercalcaemia [Not Recovered/Not Resolved]
  - Nephrosclerosis [Unknown]
  - Oedema peripheral [Unknown]
